FAERS Safety Report 10424226 (Version 1)
Quarter: 2014Q3

REPORT INFORMATION
  Report Type: Spontaneous
  Country: FR (occurrence: FR)
  Receive Date: 20140902
  Receipt Date: 20140902
  Transmission Date: 20150326
  Serious: Yes (Other)
  Sender: FDA-Public Use
  Company Number: FR-PFIZER INC-2014236470

PATIENT
  Age: 63 Year
  Sex: Male

DRUGS (8)
  1. TICARCILLIN [Suspect]
     Active Substance: TICARCILLIN
     Indication: ENTEROBACTER INFECTION
  2. NEORAL [Concomitant]
     Active Substance: CYCLOSPORINE
  3. CORTANCYL [Concomitant]
     Active Substance: PREDNISONE
  4. TICARCILLIN [Suspect]
     Active Substance: TICARCILLIN
     Indication: SEPTIC SHOCK
     Dosage: 5 G, 3X/DAY
     Route: 042
     Dates: start: 20140729, end: 20140804
  5. CELLCEPT [Concomitant]
     Active Substance: MYCOPHENOLATE MOFETIL\MYCOPHENOLATE MOFETIL HYDROCHLORIDE
  6. TAZOCILLINE [Concomitant]
     Active Substance: PIPERACILLIN SODIUM\TAZOBACTAM SODIUM
     Dosage: UNK
  7. TRIFLUCAN [Suspect]
     Active Substance: FLUCONAZOLE
     Dosage: UNK
     Route: 042
     Dates: end: 201408
  8. TIENAM [Suspect]
     Active Substance: CILASTATIN SODIUM\IMIPENEM
     Dosage: 1 G, 3X/DAY
     Route: 042
     Dates: start: 20140804, end: 20140805

REACTIONS (1)
  - Myoclonus [Recovered/Resolved]

NARRATIVE: CASE EVENT DATE: 20140805
